FAERS Safety Report 9377806 (Version 1)
Quarter: 2013Q3

REPORT INFORMATION
  Report Type: Spontaneous
  Country: FR (occurrence: FR)
  Receive Date: 20130701
  Receipt Date: 20130701
  Transmission Date: 20140515
  Serious: Yes (Hospitalization)
  Sender: FDA-Public Use
  Company Number: PHHY2013FR067682

PATIENT
  Age: 66 Year
  Sex: Female

DRUGS (4)
  1. RIMACTAN SANDOZ [Suspect]
     Indication: STAPHYLOCOCCAL INFECTION
     Dosage: 5 DF, QD
     Route: 048
     Dates: start: 20130424
  2. ZYVOXID [Suspect]
     Indication: STAPHYLOCOCCAL INFECTION
     Dosage: 600 MG, BID
     Dates: start: 20130515, end: 20130524
  3. BACTRIM FORTE [Suspect]
     Indication: STAPHYLOCOCCAL INFECTION
     Route: 048
     Dates: start: 20130429, end: 20130508
  4. OFLOCET [Suspect]
     Indication: STAPHYLOCOCCAL INFECTION
     Route: 048
     Dates: start: 20130424, end: 20130429

REACTIONS (1)
  - VIIth nerve paralysis [Not Recovered/Not Resolved]
